FAERS Safety Report 12728566 (Version 1)
Quarter: 2016Q3

REPORT INFORMATION
  Report Type: Spontaneous
  Country: NL (occurrence: NL)
  Receive Date: 20160909
  Receipt Date: 20160909
  Transmission Date: 20161109
  Serious: Yes (Other)
  Sender: FDA-Public Use
  Company Number: NL-TEVA-690428ISR

PATIENT
  Age: 71 Year
  Sex: Male

DRUGS (1)
  1. SIMVASTATIN. [Suspect]
     Active Substance: SIMVASTATIN
     Dosage: 40 MG/DAY
     Route: 065

REACTIONS (2)
  - Muscle injury [Recovered/Resolved]
  - Muscle rupture [Recovered/Resolved]
